FAERS Safety Report 7359217-9 (Version None)
Quarter: 2011Q1

REPORT INFORMATION
  Report Type: 
  Country: None (occurrence: None)
  Receive Date: 20110317
  Receipt Date: 20110304
  Transmission Date: 20110831
  Serious: Yes (Other)
  Sender: FDA-Public Use
  Company Number: PHHY2011CN19023

PATIENT

DRUGS (1)
  1. MYFORTIC [Suspect]

REACTIONS (2)
  - INTESTINAL OBSTRUCTION [None]
  - MALABSORPTION [None]
